FAERS Safety Report 18966324 (Version 6)
Quarter: 2021Q2

REPORT INFORMATION
  Report Type: Spontaneous
  Country: GB (occurrence: GB)
  Receive Date: 20210303
  Receipt Date: 20210527
  Transmission Date: 20210717
  Serious: Yes (Hospitalization, Disabling, Other)
  Sender: FDA-Public Use
  Company Number: GB-ENDO PHARMACEUTICALS INC-2021-001429

PATIENT
  Age: 21 Year
  Sex: Male
  Weight: 78 kg

DRUGS (9)
  1. AVEED [Suspect]
     Active Substance: TESTOSTERONE UNDECANOATE
     Indication: SECONDARY HYPOGONADISM
     Dosage: 1 DF, EVERY 3 MONTHS
     Route: 065
     Dates: start: 202011, end: 20210212
  2. SUSTANON                           /00418401/ [Suspect]
     Active Substance: TESTOSTERONE
     Indication: PRODUCT USED FOR UNKNOWN INDICATION
     Dosage: UNK UNKNOWN, UNKNOWN
     Route: 065
  3. AVEED [Suspect]
     Active Substance: TESTOSTERONE UNDECANOATE
     Dosage: 1 DF, 2ND DOSAGE, IN THE RIGHT BUTTOCK;
     Route: 030
     Dates: start: 20210212, end: 20210212
  4. DIHYDROCODEINE TARTRATE [Concomitant]
     Active Substance: DIHYDROCODEINE BITARTRATE
     Indication: PAIN
     Dosage: UNK UNKNOWN, UNKNOWN
     Route: 065
  5. MACROGOL [Concomitant]
     Active Substance: POLYETHYLENE GLYCOLS
     Indication: CONSTIPATION
     Dosage: UNK UNKNOWN, UNKNOWN
     Route: 065
  6. AVEED [Suspect]
     Active Substance: TESTOSTERONE UNDECANOATE
     Dosage: 1 DF, 1ST DOSAGE
     Route: 065
     Dates: start: 20201110, end: 20201110
  7. SENNOSIDE                          /00571901/ [Concomitant]
     Active Substance: SENNOSIDES A AND B
     Indication: CONSTIPATION
     Dosage: UNK UNKNOWN, UNKNOWN
     Route: 065
  8. AVEED [Suspect]
     Active Substance: TESTOSTERONE UNDECANOATE
     Dosage: 1 G, UNKNOWN
     Route: 030
     Dates: start: 20201112, end: 20210212
  9. OMEPRAZOLE. [Concomitant]
     Active Substance: OMEPRAZOLE
     Indication: PRODUCT USED FOR UNKNOWN INDICATION
     Dosage: UNK UNKNOWN, UNKNOWN
     Route: 065

REACTIONS (20)
  - Hypoaesthesia [Not Recovered/Not Resolved]
  - Urticaria [Not Recovered/Not Resolved]
  - Headache [Unknown]
  - Prostatomegaly [Unknown]
  - Pain in extremity [Not Recovered/Not Resolved]
  - Injection site pain [Unknown]
  - Gait disturbance [Not Recovered/Not Resolved]
  - Hypersensitivity [Not Recovered/Not Resolved]
  - Allergic reaction to excipient [Not Recovered/Not Resolved]
  - Rash [Recovering/Resolving]
  - Vision blurred [Unknown]
  - Pruritus [Recovering/Resolving]
  - Sensory disturbance [Unknown]
  - Electric shock sensation [Unknown]
  - Paraesthesia [Unknown]
  - Back pain [Not Recovered/Not Resolved]
  - Pain [Unknown]
  - Testicular pain [Not Recovered/Not Resolved]
  - Dysuria [Not Recovered/Not Resolved]
  - Injection site rash [Recovering/Resolving]

NARRATIVE: CASE EVENT DATE: 202011
